FAERS Safety Report 12566955 (Version 1)
Quarter: 2016Q3

REPORT INFORMATION
  Report Type: Spontaneous
  Country: SG (occurrence: SG)
  Receive Date: 20160718
  Receipt Date: 20160718
  Transmission Date: 20161109
  Serious: Yes (Other)
  Sender: FDA-Public Use
  Company Number: SG-BAYER-2016-132739

PATIENT
  Age: 27 Year
  Sex: Female

DRUGS (1)
  1. CIPROFLOXACIN. [Suspect]
     Active Substance: CIPROFLOXACIN
     Dosage: UNK

REACTIONS (2)
  - Rash [Unknown]
  - Oral discomfort [Unknown]

NARRATIVE: CASE EVENT DATE: 20160530
